FAERS Safety Report 16402191 (Version 2)
Quarter: 2019Q2

REPORT INFORMATION
  Report Type: Spontaneous
  Country: US (occurrence: US)
  Receive Date: 20190607
  Receipt Date: 20190614
  Transmission Date: 20190711
  Serious: Yes (Other)
  Sender: FDA-Public Use
  Company Number: US-EMCURE PHARMACEUTICALS LTD-2019-EPL-0260

PATIENT
  Age: 6 Year
  Sex: Male

DRUGS (2)
  1. ZOLEDRONIC ACID [Suspect]
     Active Substance: ZOLEDRONIC ACID
     Indication: ANGIOSARCOMA
     Dosage: 2.3 MG/M2/MO,MAX 4 MG/MONTH, PATIENT COMPLETED 27 ZA INFUSIONS
  2. SIROLIMUS. [Suspect]
     Active Substance: SIROLIMUS
     Indication: ANGIOSARCOMA
     Dosage: 3 MG/M2/D,TARGET TROUGH 8 TO 12 NG/ML

REACTIONS (5)
  - Osteomyelitis [Recovered/Resolved]
  - Mucosal inflammation [Unknown]
  - Bone pain [Unknown]
  - Pyrexia [Unknown]
  - Off label use [Unknown]
